FAERS Safety Report 24605192 (Version 1)
Quarter: 2024Q4

REPORT INFORMATION
  Report Type: Spontaneous
  Country: US (occurrence: US)
  Receive Date: 20241111
  Receipt Date: 20241111
  Transmission Date: 20250115
  Serious: Yes (Death, Life-Threatening, Hospitalization, Other)
  Sender: BAUSCH AND LOMB
  Company Number: US-MLMSERVICE-20241028-PI241118-00104-1

PATIENT
  Age: 79 Year
  Sex: Female

DRUGS (1)
  1. CLINDAMYCIN [Suspect]
     Active Substance: CLINDAMYCIN
     Indication: Decubitus ulcer
     Route: 065

REACTIONS (4)
  - Toxic epidermal necrolysis [Fatal]
  - Melaena [Fatal]
  - Mental status changes [Fatal]
  - Gastrointestinal inflammation [Fatal]
